FAERS Safety Report 9179709 (Version 2)
Quarter: 2013Q3

REPORT INFORMATION
  Report Type: Spontaneous
  Country: US (occurrence: US)
  Receive Date: 20130321
  Receipt Date: 20130822
  Transmission Date: 20140515
  Serious: Yes (Hospitalization, Other)
  Sender: FDA-Public Use
  Company Number: US-GILEAD-2013-0069309

PATIENT
  Age: 36 Year
  Sex: Female

DRUGS (18)
  1. LETAIRIS [Suspect]
     Indication: PULMONARY ARTERIAL HYPERTENSION
     Dosage: 10MG PER DAY
     Route: 048
     Dates: start: 20090318
  2. FLOLAN [Suspect]
     Indication: PULMONARY ARTERIAL HYPERTENSION
     Dosage: 30 NGKG/MIN
     Route: 065
     Dates: start: 20070509
  3. TRUVADA [Concomitant]
  4. ADVAIR [Concomitant]
  5. COMBIVENT [Concomitant]
  6. DEPO-PROVERA [Concomitant]
     Dosage: 150 DF, UNK
  7. FERROUS GLUCONATE [Concomitant]
     Dosage: 325 MG, UNK
  8. GABAPENTIN [Concomitant]
  9. ISENTRESS [Concomitant]
  10. LOPERAMIDE [Concomitant]
  11. OXYGEN [Concomitant]
  12. SINGULAIR [Concomitant]
  13. SINGULAIR [Concomitant]
     Dosage: 10 MG, UNK
  14. SODIUM CHLORIDE [Concomitant]
  15. SPIRONOLACTONE [Concomitant]
  16. VALTREX [Concomitant]
  17. METFORMIN [Concomitant]
  18. TYLENOL W/CODEINE [Concomitant]

REACTIONS (19)
  - Infusion site infection [Unknown]
  - Tendonitis [Unknown]
  - Pain in extremity [Unknown]
  - Local swelling [Unknown]
  - Infusion site swelling [Unknown]
  - Infusion site pain [Unknown]
  - Central venous catheterisation [Unknown]
  - Device issue [Unknown]
  - Diarrhoea [Unknown]
  - Cough [Unknown]
  - Chest pain [Unknown]
  - Pyrexia [Unknown]
  - Device related infection [Unknown]
  - Local swelling [Unknown]
  - Neck pain [Unknown]
  - Nasopharyngitis [Unknown]
  - Nausea [Unknown]
  - Vomiting [Unknown]
  - Rash [Unknown]
